FAERS Safety Report 20608505 (Version 1)
Quarter: 2022Q1

REPORT INFORMATION
  Report Type: Spontaneous
  Country: GB (occurrence: GB)
  Receive Date: 20220317
  Receipt Date: 20220317
  Transmission Date: 20220423
  Serious: Yes (Other)
  Sender: FDA-Public Use
  Company Number: GB-GLAXOSMITHKLINE-GBCH2022GSK009807

PATIENT
  Age: 75 Year
  Sex: Female
  Weight: 57 kg

DRUGS (8)
  1. TRANSDERM SCOP [Suspect]
     Active Substance: SCOPOLAMINE
     Indication: Salivary hypersecretion
     Dosage: UNK (1 MG PER 72 HOURS)
     Route: 062
     Dates: start: 20220126
  2. TRANSDERM SCOP [Suspect]
     Active Substance: SCOPOLAMINE
     Indication: Suture removal
  3. FOLIC ACID [Suspect]
     Active Substance: FOLIC ACID
     Indication: Anaemia
     Dosage: 5 MG, QD
     Dates: start: 20220111
  4. FOLIC ACID [Suspect]
     Active Substance: FOLIC ACID
     Indication: Therapeutic procedure
  5. POTASSIUM BICARBONATE\SODIUM ALGINATE [Suspect]
     Active Substance: POTASSIUM BICARBONATE\SODIUM ALGINATE
     Indication: Product used for unknown indication
     Dosage: 5 ML, QID (ONE OR TWO 5 ML SPOONFULS TO TAKEN FOUR TIMES A DAY REQUIRED)
     Route: 065
     Dates: start: 20220111
  6. XYLOCAINE [Suspect]
     Active Substance: LIDOCAINE HYDROCHLORIDE
     Indication: Product used for unknown indication
     Dosage: 3 ML
     Route: 037
     Dates: start: 20220126
  7. ISOPROPYL MYRISTATE\MINERAL OIL [Suspect]
     Active Substance: ISOPROPYL MYRISTATE\MINERAL OIL
     Indication: Product used for unknown indication
     Dosage: UNK, APPLY AS DIRECTED
     Route: 037
     Dates: start: 20211213
  8. ISOPROPYL MYRISTATE\MINERAL OIL [Suspect]
     Active Substance: ISOPROPYL MYRISTATE\MINERAL OIL
     Indication: Dry skin

REACTIONS (1)
  - Hallucination [Recovered/Resolved with Sequelae]

NARRATIVE: CASE EVENT DATE: 20220129
